FAERS Safety Report 7257118-8 (Version None)
Quarter: 2011Q1

REPORT INFORMATION
  Report Type: 
  Country: None (occurrence: None)
  Receive Date: 20110129
  Receipt Date: 20100802
  Transmission Date: 20110831
  Serious: No
  Sender: FDA-Public Use
  Company Number: US-ABBOTT-10P-163-0661205-00

PATIENT
  Age: 59 Year
  Sex: Male

DRUGS (8)
  1. JANUVIA [Concomitant]
     Indication: DIABETES MELLITUS
  2. ALLOPURINOL [Concomitant]
     Indication: GOUT
  3. HUMIRA [Suspect]
     Indication: PSORIASIS
     Dates: start: 20100610
  4. MEDFORMIN [Concomitant]
     Indication: DIABETES MELLITUS
  5. GLIPIZIDE [Concomitant]
     Indication: DIABETES MELLITUS
  6. CRESTOR [Concomitant]
     Indication: BLOOD CHOLESTEROL
  7. NEW MEDICATION [Concomitant]
     Indication: HYPERTENSION
  8. TOPROL-XL [Concomitant]
     Indication: BLOOD PRESSURE

REACTIONS (3)
  - ARTHRALGIA [None]
  - INCORRECT DRUG ADMINISTRATION DURATION [None]
  - PSORIASIS [None]
